FAERS Safety Report 7411732-5 (Version None)
Quarter: 2011Q2

REPORT INFORMATION
  Report Type: 
  Country: None (occurrence: None)
  Receive Date: 20110413
  Receipt Date: 20110113
  Transmission Date: 20111010
  Serious: Yes (Other)
  Sender: FDA-Public Use
  Company Number: US-BRISTOL-MYERS SQUIBB COMPANY-15432370

PATIENT
  Age: 57 Year
  Sex: Female

DRUGS (1)
  1. ERBITUX [Suspect]
     Indication: RECTAL CANCER
     Dosage: 1 DF=3 VIALS OF 100ML.ALSO TAKEN 1 VIAL 50ML NDC 094823 LOT 09C00512B:400MG/M2 OVER 2 HRS
     Route: 042
     Dates: start: 20101208

REACTIONS (3)
  - BLOOD PRESSURE DECREASED [None]
  - FEELING HOT [None]
  - PALLOR [None]
